FAERS Safety Report 23779122 (Version 1)
Quarter: 2024Q2

REPORT INFORMATION
  Report Type: Report from Study
  Country: BR (occurrence: BR)
  Receive Date: 20240424
  Receipt Date: 20240424
  Transmission Date: 20240715
  Serious: Yes (Death, Other)
  Sender: FDA-Public Use
  Company Number: BR-GILEAD-2024-0670576

PATIENT

DRUGS (7)
  1. TENOFOVIR DISOPROXIL FUMARATE [Suspect]
     Active Substance: TENOFOVIR DISOPROXIL FUMARATE
     Indication: HIV infection
     Dosage: UNK
     Route: 065
  2. RALTEGRAVIR [Concomitant]
     Active Substance: RALTEGRAVIR
     Dosage: 400 MG TWICE DAILY
  3. ISONIAZID [Concomitant]
     Active Substance: ISONIAZID
     Dosage: 4?6 MG/KG/DAY
  4. RIFAMPIN [Concomitant]
     Active Substance: RIFAMPIN
     Dosage: 8?12 MG/KG/DAY
  5. PYRAZINAMIDE [Concomitant]
     Active Substance: PYRAZINAMIDE
     Dosage: 20?30 MG/KG/ DAY
  6. ETHAMBUTOL [Concomitant]
     Active Substance: ETHAMBUTOL HYDROCHLORIDE
     Dosage: 15?20 MG/KG/DAY
  7. EFAVIRENZ [Concomitant]
     Active Substance: EFAVIRENZ

REACTIONS (1)
  - Immune reconstitution inflammatory syndrome associated tuberculosis [Fatal]
